FAERS Safety Report 17968454 (Version 3)
Quarter: 2020Q3

REPORT INFORMATION
  Report Type: Spontaneous
  Country: BR (occurrence: BR)
  Receive Date: 20200701
  Receipt Date: 20200814
  Transmission Date: 20201103
  Serious: Yes (Other)
  Sender: FDA-Public Use
  Company Number: BR-GLAXOSMITHKLINE-BR2019GSK104198

PATIENT
  Sex: Female
  Weight: 86 kg

DRUGS (1)
  1. BENLYSTA [Suspect]
     Active Substance: BELIMUMAB
     Indication: SYSTEMIC LUPUS ERYTHEMATOSUS
     Dosage: UNK
     Dates: start: 20190424, end: 20200608

REACTIONS (12)
  - Inappropriate schedule of product administration [Unknown]
  - Product dose omission issue [Unknown]
  - Injury [Unknown]
  - Herpes virus infection [Unknown]
  - Systemic lupus erythematosus [Unknown]
  - Haemorrhage [Unknown]
  - Hypoaesthesia [Unknown]
  - Weight decreased [Unknown]
  - Arthralgia [Unknown]
  - Platelet count decreased [Unknown]
  - Haematemesis [Unknown]
  - Asthenia [Unknown]
